FAERS Safety Report 8460528-4 (Version None)
Quarter: 2012Q2

REPORT INFORMATION
  Report Type: 
  Country: None (occurrence: None)
  Receive Date: 20120622
  Receipt Date: 20120620
  Transmission Date: 20120825
  Serious: Yes (Life-Threatening, Hospitalization)
  Sender: FDA-Public Use
  Company Number: US-ACTELION-A-NJ2012-64631

PATIENT

DRUGS (2)
  1. TRACLEER [Suspect]
     Indication: PULMONARY ARTERIAL HYPERTENSION
     Dosage: UNK
     Route: 048
     Dates: start: 20100803
  2. COUMADIN [Concomitant]

REACTIONS (11)
  - FALL [None]
  - MENIERE'S DISEASE [None]
  - PYREXIA [None]
  - DYSPNOEA [None]
  - FACE INJURY [None]
  - WOUND INFECTION STAPHYLOCOCCAL [None]
  - KIDNEY INFECTION [None]
  - CARDIAC FAILURE CONGESTIVE [None]
  - PNEUMONIA [None]
  - SEPSIS [None]
  - STAPHYLOCOCCAL BACTERAEMIA [None]
